FAERS Safety Report 8290073-0 (Version None)
Quarter: 2012Q2

REPORT INFORMATION
  Report Type: 
  Country: None (occurrence: None)
  Receive Date: 20120412
  Receipt Date: 20120412
  Transmission Date: 20120825
  Serious: Yes (Hospitalization)
  Sender: FDA-Public Use
  Company Number: None

PATIENT
  Sex: Female
  Weight: 89.2 kg

DRUGS (1)
  1. CISPLATIN [Suspect]
     Dosage: 400 MG 200 MG/M2 OVER 5 WEEKS

REACTIONS (7)
  - NEUTROPHIL COUNT ABNORMAL [None]
  - HYPOMAGNESAEMIA [None]
  - WHITE BLOOD CELL COUNT ABNORMAL [None]
  - WEIGHT DECREASED [None]
  - DEHYDRATION [None]
  - HYPOKALAEMIA [None]
  - MUCOSAL INFLAMMATION [None]
